FAERS Safety Report 10020887 (Version 1)
Quarter: 2014Q1

REPORT INFORMATION
  Report Type: Spontaneous
  Country: SE (occurrence: None)
  Receive Date: 20140313
  Receipt Date: 20140313
  Transmission Date: 20141002
  Serious: Yes (Other)
  Sender: FDA-Public Use
  Company Number: NL01PV14.35473

PATIENT
  Sex: Female

DRUGS (2)
  1. UNKNOWN (ZOLPIDEM) TABLET [Suspect]
  2. LEVAXIN (LEVOTHYROXINE SODIUM) [Concomitant]

REACTIONS (3)
  - Road traffic accident [None]
  - Confusional state [None]
  - Legal problem [None]
